FAERS Safety Report 7411371-6 (Version None)
Quarter: 2011Q2

REPORT INFORMATION
  Report Type: 
  Country: None (occurrence: None)
  Receive Date: 20110413
  Receipt Date: 20100629
  Transmission Date: 20111010
  Serious: Yes (Other)
  Sender: FDA-Public Use
  Company Number: US-BRISTOL-MYERS SQUIBB COMPANY-15172927

PATIENT
  Age: 80 Year
  Sex: Male

DRUGS (2)
  1. ERBITUX [Suspect]
     Indication: HEAD AND NECK CANCER
     Dosage: NO OF DOSES:3.
  2. LISINOPRIL [Concomitant]
     Indication: HYPERTENSION
     Dosage: DOSAGE:INCREASED,NO OF INF:4.

REACTIONS (1)
  - HYPERTENSION [None]
